FAERS Safety Report 8615970 (Version 2)
Quarter: 2012Q4

REPORT INFORMATION
  Report Type: 
  Country: US (occurrence: US)
  Receive Date: 20120614
  Receipt Date: 20121029
  Transmission Date: 20130627
  Serious: Yes (Other)
  Sender: FDA-Public Use
  Company Number: US-AMGEN-USASP2012030475

PATIENT
  Age: 38 Year
  Sex: Male
  Weight: 90.7 kg

DRUGS (6)
  1. PROLIA [Suspect]
     Indication: OSTEOPOROSIS
     Dosage: 60 mg, one time dose
     Route: 030
     Dates: start: 20120416, end: 20120416
  2. PHENERGAN                          /00033001/ [Concomitant]
     Indication: NAUSEA
     Dosage: 25 mg, tid
     Route: 048
  3. KLONOPIN [Concomitant]
     Indication: ANXIETY
     Dosage: 2 mg, bid
     Route: 048
  4. XANAX [Concomitant]
     Indication: ANXIETY
     Dosage: 1 mg, qhs
     Route: 048
  5. OXYCODONE [Concomitant]
     Indication: PAIN
     Dosage: 30 mg, qid
     Route: 048
  6. FENTANYL [Concomitant]
     Indication: PAIN
     Dosage: 95 mg, UNK
     Route: 048

REACTIONS (24)
  - Depression [Unknown]
  - Suicidal ideation [Unknown]
  - Homicidal ideation [Unknown]
  - Nightmare [Not Recovered/Not Resolved]
  - Blister [Recovered/Resolved]
  - Muscle spasms [Not Recovered/Not Resolved]
  - Anxiety [Unknown]
  - Furuncle [Unknown]
  - Bone pain [Unknown]
  - Myalgia [Not Recovered/Not Resolved]
  - Arthralgia [Not Recovered/Not Resolved]
  - Vision blurred [Not Recovered/Not Resolved]
  - Migraine [Not Recovered/Not Resolved]
  - Dizziness [Not Recovered/Not Resolved]
  - Dysuria [Not Recovered/Not Resolved]
  - Hypoaesthesia [Not Recovered/Not Resolved]
  - Paraesthesia [Not Recovered/Not Resolved]
  - Activities of daily living impaired [Unknown]
  - Muscle tightness [Unknown]
  - Fatigue [Not Recovered/Not Resolved]
  - Incorrect route of drug administration [Unknown]
  - Joint crepitation [Unknown]
  - Blister infected [Recovered/Resolved]
  - Mobility decreased [Unknown]
